FAERS Safety Report 10083499 (Version 1)
Quarter: 2014Q2

REPORT INFORMATION
  Report Type: Spontaneous
  Country: US (occurrence: None)
  Receive Date: 20140416
  Receipt Date: 20140416
  Transmission Date: 20141212
  Serious: Yes (Other)
  Sender: FDA-Public Use
  Company Number: None

PATIENT
  Age: 62 Year
  Sex: Female
  Weight: 68.95 kg

DRUGS (1)
  1. AMILORIDE [Suspect]
     Indication: HYPERTENSION
     Route: 048
     Dates: start: 20140410, end: 20140413

REACTIONS (2)
  - Palpitations [None]
  - Dyspnoea [None]
